FAERS Safety Report 11756071 (Version 1)
Quarter: 2015Q4

REPORT INFORMATION
  Report Type: Report from Study
  Country: US (occurrence: US)
  Receive Date: 20151119
  Receipt Date: 20151119
  Transmission Date: 20160304
  Serious: Yes (Hospitalization)
  Sender: FDA-Public Use
  Company Number: US-ACTELION-A-NJ2015-127525

PATIENT
  Age: 66 Year
  Sex: Female

DRUGS (10)
  1. TRACLEER [Suspect]
     Active Substance: BOSENTAN
     Indication: PULMONARY ARTERIAL HYPERTENSION
     Dosage: 125 MG, BID
     Route: 048
     Dates: start: 201308, end: 20150708
  2. SYNTHROID [Concomitant]
     Active Substance: LEVOTHYROXINE SODIUM
     Dosage: 75 MCG, QD
  3. COUMADIN [Concomitant]
     Active Substance: WARFARIN SODIUM
     Dosage: 3 MG, TUESDAY, WEDNESDAY, SATURDAY
  4. OXYGEN. [Concomitant]
     Active Substance: OXYGEN
     Dosage: 2 LITERS, AT BEDTIME
  5. REMODULIN [Concomitant]
     Active Substance: TREPROSTINIL
     Dosage: 2.5 MG/HR, OVER 24 HOURS
     Dates: start: 201506
  6. CITALOPRAM [Concomitant]
     Active Substance: CITALOPRAM HYDROBROMIDE
     Dosage: 10 MG, QD
  7. COUMADIN [Concomitant]
     Active Substance: WARFARIN SODIUM
     Dosage: 6 MG, SUNDAY, MONDAY, THURSDAY, FRIDAY
  8. VELETRI [Suspect]
     Active Substance: EPOPROSTENOL
     Indication: PULMONARY ARTERIAL HYPERTENSION
     Dosage: UNK
     Route: 042
     Dates: end: 201506
  9. ATORVASTATIN [Concomitant]
     Active Substance: ATORVASTATIN
     Dosage: 10 MG, QD
     Dates: start: 2013
  10. OXYGEN. [Concomitant]
     Active Substance: OXYGEN
     Dosage: 3 LITERS, WITH EXERTION

REACTIONS (2)
  - Haemorrhage [Recovered/Resolved]
  - Anxiety [Recovered/Resolved]

NARRATIVE: CASE EVENT DATE: 201506
